FAERS Safety Report 6053844-7 (Version None)
Quarter: 2009Q1

REPORT INFORMATION
  Report Type: 
  Country: None (occurrence: None)
  Receive Date: 20090122
  Receipt Date: 20090110
  Transmission Date: 20090719
  Serious: Yes (Hospitalization)
  Sender: FDA-Public Use
  Company Number: 2008-185943-NL

PATIENT
  Sex: Female

DRUGS (6)
  1. MIRTAZAPINE [Suspect]
     Indication: DEPRESSION
     Dosage: 15 MG QD
     Route: 048
     Dates: start: 20080619
  2. MIRTAZAPINE [Suspect]
     Indication: DEPRESSION
     Dosage: 15 MG QD
     Route: 048
     Dates: start: 20080711
  3. AMITRIPTYLINE HYDROCHLORIDE [Suspect]
     Indication: DEPRESSION
     Dosage: DF/75 MG
     Route: 048
     Dates: start: 20080610, end: 20080618
  4. AMITRIPTYLINE HYDROCHLORIDE [Suspect]
     Indication: DEPRESSION
     Dosage: DF/75 MG
     Route: 048
     Dates: start: 20080619
  5. LORAZEPAM [Suspect]
     Dosage: 1 MG
     Dates: start: 20080630, end: 20080721
  6. ACETAMINOPHEN [Concomitant]

REACTIONS (1)
  - LONG QT SYNDROME [None]
